FAERS Safety Report 7620202-0 (Version None)
Quarter: 2011Q3

REPORT INFORMATION
  Report Type: 
  Country: None (occurrence: None)
  Receive Date: 20110719
  Receipt Date: 20110705
  Transmission Date: 20111222
  Serious: Yes (Hospitalization)
  Sender: FDA-Public Use
  Company Number: PHHY2011AU60680

PATIENT
  Sex: Male

DRUGS (1)
  1. CLOZAPINE [Suspect]
     Dosage: 450 MG, DAILY
     Dates: start: 19951121

REACTIONS (4)
  - SUICIDAL IDEATION [None]
  - HYPERTENSION [None]
  - MALAISE [None]
  - CARDIAC DISORDER [None]
